FAERS Safety Report 16215054 (Version 2)
Quarter: 2019Q2

REPORT INFORMATION
  Report Type: Spontaneous
  Country: IT (occurrence: IT)
  Receive Date: 20190418
  Receipt Date: 20190606
  Transmission Date: 20190711
  Serious: Yes (Hospitalization)
  Sender: FDA-Public Use
  Company Number: IT-SUN PHARMACEUTICAL INDUSTRIES LTD-2019RR-205648

PATIENT
  Age: 60 Year
  Sex: Female
  Weight: 110 kg

DRUGS (1)
  1. PAROXETINE. [Suspect]
     Active Substance: PAROXETINE
     Indication: PRODUCT ADMINISTRATION ERROR
     Dosage: IN TOTAL
     Route: 048
     Dates: start: 20190323, end: 20190324

REACTIONS (2)
  - Medication error [Recovered/Resolved]
  - Akathisia [Recovered/Resolved]
